FAERS Safety Report 10885075 (Version 1)
Quarter: 2015Q1

REPORT INFORMATION
  Report Type: Report from Study
  Country: DE (occurrence: None)
  Receive Date: 20150227
  Receipt Date: 20150227
  Transmission Date: 20150721
  Serious: Yes (Life-Threatening, Hospitalization)
  Sender: FDA-Public Use
  Company Number: DE-2013VAL000361

PATIENT
  Age: 68 Year
  Sex: Male
  Weight: 114.9 kg

DRUGS (7)
  1. TAMSULOSIN (TAMSULOSIN) [Concomitant]
     Active Substance: TAMSULOSIN
  2. METOPROLOL TARTRATE (METOPROLOL TARTRATE) UNKNOWN [Suspect]
     Active Substance: METOPROLOL TARTRATE
     Indication: HYPERTENSION
     Route: 048
     Dates: start: 201207, end: 20130604
  3. TORASEMID (TORASEMIDE) [Concomitant]
  4. ASS (ACETYLSALICYLIC ACID) [Concomitant]
  5. DOXAZOSIN [Concomitant]
     Active Substance: DOXAZOSIN\DOXAZOSIN MESYLATE
  6. ACZ885 VS PLACEBO (PLACEBO COMP-PLA+) [Suspect]
     Active Substance: CANAKINUMAB
     Indication: CARDIAC FAILURE
     Route: 058
     Dates: start: 20121121
  7. RAMIPRIL (RAMIPRIL) [Concomitant]
     Active Substance: RAMIPRIL

REACTIONS (5)
  - Disease progression [None]
  - Coronary artery disease [None]
  - Cardiac failure [None]
  - Bradycardia [None]
  - Respiratory failure [None]

NARRATIVE: CASE EVENT DATE: 20130604
